FAERS Safety Report 5315425-X (Version None)
Quarter: 2007Q2

REPORT INFORMATION
  Report Type: 
  Country: None (occurrence: None)
  Receive Date: 20070503
  Receipt Date: 20070425
  Transmission Date: 20071010
  Serious: Yes (Other)
  Sender: FDA-Public Use
  Company Number: PHEH2007US04652

PATIENT
  Age: 68 Year
  Sex: Female

DRUGS (2)
  1. ZELNORM [Suspect]
     Dosage: 6 MG 1/2 TO 1 TAB DAILY
     Route: 048
     Dates: start: 20060101, end: 20070401
  2. NEXIUM [Concomitant]

REACTIONS (6)
  - ASTHENIA [None]
  - FALL [None]
  - FATIGUE [None]
  - JOINT INJURY [None]
  - LOSS OF CONSCIOUSNESS [None]
  - WRIST FRACTURE [None]
